FAERS Safety Report 8808806 (Version 1)
Quarter: 2012Q4

REPORT INFORMATION
  Report Type: Spontaneous
  Country: US (occurrence: None)
  Receive Date: 20120920
  Receipt Date: 20120920
  Transmission Date: 20130627
  Serious: Yes (Life-Threatening)
  Sender: FDA-Public Use
  Company Number: None

PATIENT
  Age: 11 Year
  Sex: Female
  Weight: 28.12 kg

DRUGS (1)
  1. EXJADE [Suspect]
     Indication: IRON OVERLOAD
     Route: 048
     Dates: start: 20110501, end: 20120914

REACTIONS (7)
  - Dehydration [None]
  - Vomiting [None]
  - Decreased appetite [None]
  - Weight decreased [None]
  - Grand mal convulsion [None]
  - Renal tubular acidosis [None]
  - Blood pressure increased [None]
